FAERS Safety Report 4688839-9 (Version None)
Quarter: 2005Q2

REPORT INFORMATION
  Report Type: 
  Country: None (occurrence: None)
  Receive Date: 20050613
  Receipt Date: 20050601
  Transmission Date: 20051028
  Serious: Yes (Disabling)
  Sender: FDA-Public Use
  Company Number: GB-GLAXOSMITHKLINE-B0383123A

PATIENT
  Age: 57 Year
  Sex: Female
  Weight: 77 kg

DRUGS (6)
  1. CO-AMOXICLAV [Suspect]
     Indication: BRONCHIECTASIS
     Route: 048
     Dates: start: 20050509, end: 20050516
  2. CIPROFLOXACIN [Concomitant]
     Route: 065
     Dates: start: 20050523
  3. OMEPRAZOLE [Concomitant]
     Route: 065
     Dates: start: 19971104
  4. EVOREL CONTI [Concomitant]
     Route: 065
     Dates: start: 19981109
  5. MOXIFLOXACIN HYDROCHLORIDE [Concomitant]
     Route: 065
     Dates: end: 20050406
  6. SYMBICORT [Concomitant]
     Route: 065
     Dates: start: 20050302

REACTIONS (1)
  - POLYARTHRITIS [None]
